FAERS Safety Report 4757899-9 (Version None)
Quarter: 2005Q3

REPORT INFORMATION
  Report Type: 
  Country: None (occurrence: None)
  Receive Date: 20050831
  Receipt Date: 20050822
  Transmission Date: 20060218
  Serious: Yes (Congenital Anomaly, Other)
  Sender: FDA-Public Use
  Company Number: 200517483GDDC

PATIENT
  Sex: Female

DRUGS (1)
  1. CLOMID [Suspect]

REACTIONS (3)
  - CONGENITAL ANOMALY [None]
  - CONGENITAL UTERINE ANOMALY [None]
  - TWIN PREGNANCY [None]
